FAERS Safety Report 9172916 (Version 1)
Quarter: 2013Q1

REPORT INFORMATION
  Report Type: Spontaneous
  Country: US (occurrence: US)
  Receive Date: 20130320
  Receipt Date: 20130320
  Transmission Date: 20140127
  Serious: Yes (Hospitalization, Other)
  Sender: FDA-Public Use
  Company Number: US-BRISTOL-MYERS SQUIBB COMPANY-17462656

PATIENT
  Age: 55 Year
  Sex: Female

DRUGS (1)
  1. YERVOY [Suspect]

REACTIONS (3)
  - Perforation bile duct [Unknown]
  - Splenic rupture [Unknown]
  - Colitis [Unknown]
